FAERS Safety Report 8403033-3 (Version None)
Quarter: 2012Q2

REPORT INFORMATION
  Report Type: 
  Country: None (occurrence: None)
  Receive Date: 20120601
  Receipt Date: 20120522
  Transmission Date: 20120825
  Serious: Yes (Hospitalization, Other)
  Sender: FDA-Public Use
  Company Number: CA-ELI_LILLY_AND_COMPANY-CA201205008168

PATIENT
  Age: 69 Year
  Sex: Female

DRUGS (9)
  1. PANTOPRAZOLE [Concomitant]
  2. FORTEO [Suspect]
     Indication: OSTEOPOROSIS
     Dosage: 20 UG, QD
     Route: 058
     Dates: start: 20120331, end: 20120428
  3. TIAZAC [Concomitant]
  4. MIRTAZAPINE [Concomitant]
  5. SYNTHROID [Concomitant]
  6. DOCUSATE SODIUM [Concomitant]
  7. TYLENOL (CAPLET) [Concomitant]
  8. ANTIINFLAMMATORY AGENTS [Concomitant]
  9. NOVOSEMIDE [Concomitant]

REACTIONS (2)
  - HIP FRACTURE [None]
  - FALL [None]
